FAERS Safety Report 4951306-9 (Version None)
Quarter: 2006Q1

REPORT INFORMATION
  Report Type: 
  Country: None (occurrence: None)
  Receive Date: 20060317
  Receipt Date: 20060313
  Transmission Date: 20060701
  Serious: Yes (Death, Other)
  Sender: FDA-Public Use
  Company Number: 2006-03-0677

PATIENT
  Age: 39 Year
  Sex: Male

DRUGS (1)
  1. PROVENTIL [Suspect]
     Dosage: ORAL AER INH
     Route: 048

REACTIONS (3)
  - FALL [None]
  - MALAISE [None]
  - RESUSCITATION [None]
